FAERS Safety Report 7114092-2 (Version None)
Quarter: 2010Q4

REPORT INFORMATION
  Report Type: 
  Country: None (occurrence: None)
  Receive Date: 20101119
  Receipt Date: 20101117
  Transmission Date: 20110411
  Serious: Yes (Other)
  Sender: FDA-Public Use
  Company Number: US-BAYER-201020615NA

PATIENT
  Age: 30 Year
  Sex: Female

DRUGS (2)
  1. ULTRAVIST 370 [Suspect]
     Indication: COMPUTERISED TOMOGRAM ABDOMEN
     Dosage: TOTAL DAILY DOSE: 125 ML
     Route: 042
     Dates: start: 20100319, end: 20100319
  2. UNSPECIFIED CONTRAST MEDIA [Concomitant]
     Indication: COMPUTERISED TOMOGRAM ABDOMEN
     Route: 048
     Dates: start: 20100319, end: 20100319

REACTIONS (6)
  - CONTRAST MEDIA REACTION [None]
  - COUGH [None]
  - OROPHARYNGEAL DISCOMFORT [None]
  - PERIORBITAL OEDEMA [None]
  - PHARYNGEAL OEDEMA [None]
  - SNEEZING [None]
